FAERS Safety Report 16710349 (Version 1)
Quarter: 2019Q3

REPORT INFORMATION
  Report Type: Spontaneous
  Country: US (occurrence: US)
  Receive Date: 20190816
  Receipt Date: 20190816
  Transmission Date: 20191004
  Serious: No
  Sender: FDA-Public Use
  Company Number: US-PFIZER INC-2019348218

PATIENT
  Age: 63 Year
  Sex: Female
  Weight: 96 kg

DRUGS (1)
  1. IBRANCE [Suspect]
     Active Substance: PALBOCICLIB
     Indication: BREAST CANCER FEMALE
     Dosage: 125 MG, CYCLIC, (1 CAPSULE ONCE DAILY, FOR 21 DAYS THEN OFF FOR 7 DAYS OF 28 DAY CYCLE)
     Route: 048
     Dates: start: 20190722

REACTIONS (1)
  - Hypoaesthesia [Unknown]

NARRATIVE: CASE EVENT DATE: 20190812
